FAERS Safety Report 5479559-1 (Version None)
Quarter: 2007Q4

REPORT INFORMATION
  Report Type: 
  Country: None (occurrence: None)
  Receive Date: 20071008
  Receipt Date: 20071002
  Transmission Date: 20080405
  Serious: Yes (Hospitalization)
  Sender: FDA-Public Use
  Company Number: US-MERCK-0710USA00691

PATIENT
  Age: 64 Year
  Sex: Male

DRUGS (6)
  1. ZOCOR [Suspect]
     Indication: BLOOD CHOLESTEROL INCREASED
     Route: 048
     Dates: start: 20020101, end: 20070406
  2. ZOCOR [Suspect]
     Route: 048
     Dates: start: 20070407, end: 20070428
  3. ZYRTEC [Concomitant]
     Route: 065
  4. OMEPRAZOLE [Concomitant]
     Route: 065
  5. CYTRA K [Concomitant]
     Route: 065
  6. FAMCICLOVIR [Concomitant]
     Route: 065

REACTIONS (10)
  - ASTHENIA [None]
  - BLOOD CREATINE PHOSPHOKINASE INCREASED [None]
  - EOSINOPHIL COUNT INCREASED [None]
  - JOINT SWELLING [None]
  - MONOCYTE COUNT INCREASED [None]
  - MYALGIA [None]
  - OEDEMA PERIPHERAL [None]
  - PROTEIN URINE PRESENT [None]
  - WEIGHT DECREASED [None]
  - WHITE BLOOD CELL COUNT INCREASED [None]
